FAERS Safety Report 5582822-7 (Version None)
Quarter: 2008Q1

REPORT INFORMATION
  Report Type: 
  Country: None (occurrence: None)
  Receive Date: 20080107
  Receipt Date: 20071123
  Transmission Date: 20080703
  Serious: Yes (Death, Hospitalization)
  Sender: FDA-Public Use
  Company Number: MU-AVENTIS-200810067GDDC

PATIENT
  Age: 35 Year
  Sex: Female

DRUGS (4)
  1. ARAVA [Suspect]
     Indication: RHEUMATOID ARTHRITIS
     Route: 048
     Dates: start: 20071001, end: 20071109
  2. FLAGYL [Suspect]
     Indication: DIARRHOEA
     Dosage: DOSE: UNK
     Dates: start: 20071114, end: 20071118
  3. FLAGYL [Suspect]
     Indication: VOMITING
     Dosage: DOSE: UNK
     Dates: start: 20071114, end: 20071118
  4. FLAGYL [Suspect]
     Indication: PYREXIA
     Dosage: DOSE: UNK
     Dates: start: 20071114, end: 20071118

REACTIONS (26)
  - AGITATION [None]
  - ALANINE AMINOTRANSFERASE INCREASED [None]
  - APHTHOUS STOMATITIS [None]
  - ASPARTATE AMINOTRANSFERASE INCREASED [None]
  - BLOOD ALKALINE PHOSPHATASE INCREASED [None]
  - BLOOD CULTURE POSITIVE [None]
  - CARDIAC ARREST [None]
  - COMA [None]
  - CONFUSIONAL STATE [None]
  - CONVULSION [None]
  - CYTOLYTIC HEPATITIS [None]
  - DIARRHOEA [None]
  - GAMMA-GLUTAMYLTRANSFERASE INCREASED [None]
  - HAEMOGLOBIN DECREASED [None]
  - HEADACHE [None]
  - HEPATITIS FULMINANT [None]
  - INTERNATIONAL NORMALISED RATIO INCREASED [None]
  - INTERSTITIAL LUNG DISEASE [None]
  - JAUNDICE [None]
  - PROTHROMBIN TIME SHORTENED [None]
  - PYREXIA [None]
  - RASH [None]
  - RESPIRATORY DISTRESS [None]
  - STAPHYLOCOCCAL INFECTION [None]
  - TOXIC SKIN ERUPTION [None]
  - VOMITING [None]
